FAERS Safety Report 9954977 (Version 2)
Quarter: 2014Q1

REPORT INFORMATION
  Report Type: Report from Study
  Country: PR (occurrence: PR)
  Receive Date: 20140304
  Receipt Date: 20140304
  Transmission Date: 20141002
  Serious: No
  Sender: FDA-Public Use
  Company Number: PR-ABBVIE-12P-131-0900019-00

PATIENT
  Age: 61 Year
  Sex: Female
  Weight: 50.85 kg

DRUGS (6)
  1. HUMIRA [Suspect]
     Indication: RHEUMATOID ARTHRITIS
     Route: 058
     Dates: start: 20111024
  2. LANTUS [Concomitant]
     Indication: DIABETES MELLITUS
     Dosage: AT NIGHT
     Route: 058
  3. JANUMET [Concomitant]
     Indication: DIABETES MELLITUS
     Dosage: 50/500MG
     Route: 048
  4. METHOTREXATE [Concomitant]
     Indication: RHEUMATOID ARTHRITIS
     Route: 048
  5. FOLIC ACID [Concomitant]
     Indication: VITAMIN SUPPLEMENTATION
     Route: 048
  6. SINGULAIR [Concomitant]
     Indication: PROPHYLAXIS
     Route: 048

REACTIONS (3)
  - Malaise [Unknown]
  - Nasopharyngitis [Recovered/Resolved]
  - Nasopharyngitis [Recovered/Resolved]
